FAERS Safety Report 7902593-6 (Version None)
Quarter: 2011Q4

REPORT INFORMATION
  Report Type: 
  Country: None (occurrence: None)
  Receive Date: 20111108
  Receipt Date: 20111024
  Transmission Date: 20120403
  Serious: Yes (Hospitalization, Other)
  Sender: FDA-Public Use
  Company Number: CN-WATSON-2011-17973

PATIENT
  Age: 50 Year
  Sex: Female

DRUGS (2)
  1. AZATHIOPRINE [Suspect]
     Indication: PEMPHIGUS
     Dosage: 100 MG, DAILY
     Route: 065
  2. PREDNISONE [Suspect]
     Indication: PEMPHIGUS
     Dosage: 50 MG, DAILY

REACTIONS (12)
  - VISION BLURRED [None]
  - FATIGUE [None]
  - STAPHYLOCOCCAL INFECTION [None]
  - PYREXIA [None]
  - ACINETOBACTER INFECTION [None]
  - TREMOR [None]
  - HERPES ZOSTER [None]
  - PNEUMOCYSTIS JIROVECI PNEUMONIA [None]
  - FOLLICULITIS [None]
  - DYSPNOEA [None]
  - DIABETES MELLITUS [None]
  - PURPURA [None]
